FAERS Safety Report 10109615 (Version 1)
Quarter: 2014Q2

REPORT INFORMATION
  Report Type: Spontaneous
  Country: FR (occurrence: None)
  Receive Date: 20140423
  Receipt Date: 20140423
  Transmission Date: 20141212
  Serious: Yes (Life-Threatening)
  Sender: FDA-Public Use
  Company Number: FK201401376

PATIENT
  Age: 56 Year
  Sex: Male

DRUGS (2)
  1. PROPOFOL FRESENIUS [Suspect]
     Indication: GENERAL ANAESTHESIA
     Dosage: 400 MG, 1 IN 1 D
     Route: 042
     Dates: start: 20140130, end: 20140130
  2. CELOCURINE [Suspect]
     Indication: GENERAL ANAESTHESIA
     Dosage: 130 MG, 1 IN 1 D

REACTIONS (3)
  - Acute respiratory distress syndrome [None]
  - Anaphylactic shock [None]
  - Hypertension [None]
